FAERS Safety Report 5150448-5 (Version None)
Quarter: 2006Q4

REPORT INFORMATION
  Report Type: 
  Country: None (occurrence: None)
  Receive Date: 20061108
  Receipt Date: 20061027
  Transmission Date: 20070319
  Serious: Yes (Other)
  Sender: FDA-Public Use
  Company Number: CAWYE357727OCT06

PATIENT
  Age: 42 Year
  Sex: Male

DRUGS (4)
  1. EFFEXOR XR [Suspect]
     Dosage: 75 MG OD, ORAL
     Route: 048
     Dates: start: 20051201
  2. VALPROATE SODIUM [Concomitant]
  3. TEGRETOL [Concomitant]
  4. SEROQUEL [Concomitant]

REACTIONS (2)
  - HOMICIDE [None]
  - ROAD TRAFFIC ACCIDENT [None]
